FAERS Safety Report 5214733-0 (Version None)
Quarter: 2007Q1

REPORT INFORMATION
  Report Type: 
  Country: None (occurrence: None)
  Receive Date: 20070122
  Receipt Date: 20070115
  Transmission Date: 20070707
  Serious: Yes (Hospitalization)
  Sender: FDA-Public Use
  Company Number: DK-SANOFI-SYNTHELABO-A01200700341

PATIENT
  Age: 73 Year
  Sex: Female

DRUGS (2)
  1. ELOXATIN [Suspect]
     Indication: COLORECTAL CANCER
     Dosage: 210 MG
     Route: 042
     Dates: start: 20070104, end: 20070104
  2. XELODA [Concomitant]
     Indication: COLORECTAL CANCER
     Route: 065
     Dates: start: 20070104, end: 20070104

REACTIONS (5)
  - LARYNGOSPASM [None]
  - NAUSEA [None]
  - PARESIS [None]
  - SPEECH DISORDER [None]
  - VOMITING [None]
